FAERS Safety Report 9305585 (Version 1)
Quarter: 2013Q2

REPORT INFORMATION
  Report Type: Spontaneous
  Country: US (occurrence: US)
  Receive Date: 20130523
  Receipt Date: 20130523
  Transmission Date: 20140414
  Serious: Yes (Other)
  Sender: FDA-Public Use
  Company Number: US-ROCHE-1027666

PATIENT
  Sex: Female
  Weight: 45.4 kg

DRUGS (2)
  1. ACCUTANE [Suspect]
     Indication: ACNE
     Route: 065
     Dates: start: 1995, end: 1997
  2. ACCUTANE [Suspect]
     Route: 065
     Dates: start: 1997, end: 1999

REACTIONS (2)
  - Colitis ulcerative [Unknown]
  - Anxiety [Unknown]
